FAERS Safety Report 7391582-9 (Version None)
Quarter: 2011Q2

REPORT INFORMATION
  Report Type: 
  Country: None (occurrence: None)
  Receive Date: 20110404
  Receipt Date: 20110322
  Transmission Date: 20111010
  Serious: Yes (Other)
  Sender: FDA-Public Use
  Company Number: PHHY2011FR16331

PATIENT
  Age: 81 Year
  Sex: Female

DRUGS (1)
  1. TAREG [Suspect]
     Indication: HYPERTENSION
     Dosage: 40 MG, DAILY
     Dates: end: 20110223

REACTIONS (5)
  - CARDIAC FAILURE [None]
  - DYSPNOEA [None]
  - SPEECH DISORDER [None]
  - OEDEMA PERIPHERAL [None]
  - GAIT DISTURBANCE [None]
